FAERS Safety Report 14542372 (Version 2)
Quarter: 2018Q1

REPORT INFORMATION
  Report Type: Spontaneous
  Country: CA (occurrence: CA)
  Receive Date: 20180216
  Receipt Date: 20180221
  Transmission Date: 20180509
  Serious: Yes (Hospitalization, Other)
  Sender: FDA-Public Use
  Company Number: CA-CELLTRION INC.-2017CA007406

PATIENT

DRUGS (4)
  1. INFLECTRA [Suspect]
     Active Substance: INFLIXIMAB-DYYB
     Indication: RHEUMATOID ARTHRITIS
     Dosage: 5 MG, PER KG, CYCLIC THEN EVERY 6 WEEKS
     Route: 042
     Dates: start: 20170113
  2. METHOTREXATE. [Concomitant]
     Active Substance: METHOTREXATE
     Dosage: 20 MG, WEEKLY
  3. INFLECTRA [Suspect]
     Active Substance: INFLIXIMAB-DYYB
     Dosage: 5 MG, PER KG, CYCLIC THEN EVERY 6 WEEKS
     Route: 042
     Dates: start: 20171220
  4. LEUCOVORIN                         /00566701/ [Concomitant]
     Active Substance: LEUCOVORIN
     Dosage: UNK UNK, WEEKLY

REACTIONS (6)
  - Influenza [Unknown]
  - Atrial fibrillation [Unknown]
  - Product use issue [Unknown]
  - Blood pressure fluctuation [Unknown]
  - Bronchitis [Unknown]
  - Incorrect drug administration rate [Unknown]
